FAERS Safety Report 10330917 (Version 1)
Quarter: 2014Q3

REPORT INFORMATION
  Report Type: Report from Study
  Country: US (occurrence: US)
  Receive Date: 20140722
  Receipt Date: 20140722
  Transmission Date: 20150326
  Serious: Yes (Other)
  Sender: FDA-Public Use
  Company Number: US-ROCHE-1437537

PATIENT
  Age: 16 Year
  Sex: Male
  Weight: 52.5 kg

DRUGS (4)
  1. NUTROPIN AQ [Suspect]
     Active Substance: SOMATROPIN
     Indication: GROWTH HORMONE DEFICIENCY
     Route: 065
     Dates: start: 2012
  2. RISPERDAL [Concomitant]
     Active Substance: RISPERIDONE
     Route: 048
  3. FOCALIN [Concomitant]
     Active Substance: DEXMETHYLPHENIDATE HYDROCHLORIDE
     Route: 048
  4. CELEXA (UNITED STATES) [Concomitant]
     Dosage: EVERY MORNING
     Route: 048

REACTIONS (6)
  - Insulin-like growth factor decreased [Unknown]
  - Polydipsia [Unknown]
  - Polyuria [Unknown]
  - Drug dose omission [Unknown]
  - Bone development abnormal [Unknown]
  - Visual impairment [Unknown]

NARRATIVE: CASE EVENT DATE: 20140610
